FAERS Safety Report 4657692-1 (Version None)
Quarter: 2005Q2

REPORT INFORMATION
  Report Type: 
  Country: None (occurrence: None)
  Receive Date: 20050510
  Receipt Date: 20050425
  Transmission Date: 20051028
  Serious: Yes (Life-Threatening, Other)
  Sender: FDA-Public Use
  Company Number: NL-JNJFOC-20040405458

PATIENT
  Sex: Male
  Weight: 89 kg

DRUGS (3)
  1. REMICADE [Suspect]
     Indication: RHEUMATOID ARTHRITIS
     Dosage: NO DRUG ADMINISTERED
     Route: 042
  2. SULFASALAZINE [Concomitant]
     Indication: RHEUMATOID ARTHRITIS
  3. DICLOFENAC SODIUM [Concomitant]

REACTIONS (2)
  - LYMPHOCYTIC LEUKAEMIA [None]
  - NON-HODGKIN'S LYMPHOMA [None]
